FAERS Safety Report 5662588-2 (Version None)
Quarter: 2008Q1

REPORT INFORMATION
  Report Type: 
  Country: None (occurrence: None)
  Receive Date: 20080219
  Receipt Date: 20070814
  Transmission Date: 20080703
  Serious: Yes (Other)
  Sender: FDA-Public Use
  Company Number: 2007067331

PATIENT
  Age: 62 Year
  Sex: Male
  Weight: 99 kg

DRUGS (5)
  1. FRAGMIN [Suspect]
     Indication: PROPHYLAXIS
     Dosage: 18 I.U.
     Dates: start: 20070722, end: 20070802
  2. COUMADIN [Suspect]
     Dosage: 7.5 MG (DAILY); 8 MG (DAILY); 10 MG (DAILY); 7.5 MG (DAILY)
     Dates: start: 20070720, end: 20070724
  3. COUMADIN [Suspect]
     Dosage: 7.5 MG (DAILY); 8 MG (DAILY); 10 MG (DAILY); 7.5 MG (DAILY)
     Dates: start: 20070725, end: 20070726
  4. COUMADIN [Suspect]
     Dosage: 7.5 MG (DAILY); 8 MG (DAILY); 10 MG (DAILY); 7.5 MG (DAILY)
     Dates: start: 20070727, end: 20070727
  5. COUMADIN [Suspect]
     Dosage: 7.5 MG (DAILY); 8 MG (DAILY); 10 MG (DAILY); 7.5 MG (DAILY)
     Dates: start: 20070728, end: 20070731

REACTIONS (1)
  - URETHRAL HAEMORRHAGE [None]
